FAERS Safety Report 5963880-4 (Version None)
Quarter: 2008Q4

REPORT INFORMATION
  Report Type: 
  Country: None (occurrence: None)
  Receive Date: 20081124
  Receipt Date: 20081112
  Transmission Date: 20090506
  Serious: Yes (Other)
  Sender: FDA-Public Use
  Company Number: US-SANOFI-SYNTHELABO-F03200800119

PATIENT
  Age: 976 Month
  Sex: Female

DRUGS (4)
  1. CETUXIMAB [Suspect]
     Indication: COLON CANCER STAGE II
     Dosage: 400 MG/M2 ON DAY ONE THEN 250 MG/M2 ON DAY EIGHT
     Route: 042
  2. LEUCOVORIN CALCIUM [Suspect]
     Indication: COLON CANCER STAGE II
     Route: 042
  3. FLUOROURACIL [Suspect]
     Indication: COLON CANCER STAGE II
     Route: 042
  4. OXALIPLATIN [Suspect]
     Indication: COLON CANCER STAGE II
     Route: 042

REACTIONS (1)
  - HYPOMAGNESAEMIA [None]
